FAERS Safety Report 8839707 (Version 1)
Quarter: 2012Q4

REPORT INFORMATION
  Report Type: 
  Country: IT (occurrence: IT)
  Receive Date: 20121015
  Receipt Date: 20121015
  Transmission Date: 20130627
  Serious: Yes (Hospitalization)
  Sender: FDA-Public Use
  Company Number: IT-BRISTOL-MYERS SQUIBB COMPANY-17019258

PATIENT
  Age: 81 Year
  Sex: Female

DRUGS (9)
  1. COUMADIN TABS 5 MG [Suspect]
     Indication: ATRIAL FIBRILLATION
     Dosage: 1Dose
     Dates: start: 20120201, end: 20120910
  2. CARDIOASPIRIN [Suspect]
     Indication: MYOCARDIAL ISCHAEMIA
     Dosage: 1DF: Tab 100mg
     Route: 048
     Dates: start: 20120101, end: 20120910
  3. PLAVIX [Suspect]
     Dosage: Tab
     Route: 048
  4. BISOPROLOL HEMIFUMARATE [Concomitant]
     Dosage: Tab
     Route: 048
  5. ALLOPURINOL [Concomitant]
     Route: 048
  6. FUROSEMIDE [Concomitant]
     Dosage: 1DF; 2 tab
     Route: 048
  7. TRIATEC [Concomitant]
     Dosage: 5mg tab
     Route: 048
  8. PEPTAZOL [Concomitant]
     Dosage: 1DF; tab 20mg
     Route: 048
  9. ESAPENT [Concomitant]
     Dosage: 1DF: 1 g soft capsules
     Route: 048

REACTIONS (4)
  - Rectal haemorrhage [Unknown]
  - Melaena [Unknown]
  - Dyspnoea [Unknown]
  - Anaemia [Unknown]
